FAERS Safety Report 5250661-2 (Version None)
Quarter: 2007Q1

REPORT INFORMATION
  Report Type: 
  Country: None (occurrence: None)
  Receive Date: 20070228
  Receipt Date: 20060613
  Transmission Date: 20070707
  Serious: No
  Sender: FDA-Public Use
  Company Number: US-GLAXOSMITHKLINE-A0608893A

PATIENT
  Sex: Female

DRUGS (3)
  1. LAMICTAL [Suspect]
     Indication: DRUG USE FOR UNKNOWN INDICATION
     Dosage: 20MG PER DAY
  2. HAIR DYE [Suspect]
  3. LEXAPRO [Concomitant]
     Dosage: 40MG PER DAY
     Route: 048

REACTIONS (3)
  - ALOPECIA [None]
  - BURNING SENSATION [None]
  - HYPERSENSITIVITY [None]
